FAERS Safety Report 5704504-0 (Version None)
Quarter: 2008Q2

REPORT INFORMATION
  Report Type: 
  Country: None (occurrence: None)
  Receive Date: 20080414
  Receipt Date: 20080411
  Transmission Date: 20081010
  Serious: Yes (Hospitalization)
  Sender: FDA-Public Use
  Company Number: AU-MERCK-0802AUS00004

PATIENT
  Age: 54 Year
  Sex: Female

DRUGS (2)
  1. FOSAMAX [Suspect]
     Indication: OSTEOPOROSIS
     Route: 048
     Dates: end: 20070801
  2. MELOXICAM [Suspect]
     Indication: ARTHRITIS
     Route: 048
     Dates: end: 20071001

REACTIONS (5)
  - CHOKING [None]
  - GASTRITIS [None]
  - HIATUS HERNIA [None]
  - OESOPHAGEAL SPASM [None]
  - VOMITING [None]
